FAERS Safety Report 9317478 (Version 1)
Quarter: 2013Q2

REPORT INFORMATION
  Report Type: Spontaneous
  Country: US (occurrence: US)
  Receive Date: 20130530
  Receipt Date: 20130530
  Transmission Date: 20140414
  Serious: No
  Sender: FDA-Public Use
  Company Number: US-GLAXOSMITHKLINE-A0838317A

PATIENT
  Age: 61 Year
  Sex: Female

DRUGS (5)
  1. VENTOLIN [Suspect]
     Indication: ASTHMA
     Dosage: 2PUFF AS REQUIRED
     Route: 055
     Dates: start: 2005
  2. FLOVENT [Suspect]
     Indication: ASTHMA
     Dosage: 1PUFF TWICE PER DAY
     Route: 055
     Dates: start: 20130222
  3. IBUPROFEN [Concomitant]
  4. ALBUTEROL [Concomitant]
  5. ALBUTEROL [Concomitant]

REACTIONS (9)
  - Chest discomfort [Recovered/Resolved]
  - Blood pressure systolic increased [Recovered/Resolved]
  - Tremor [Recovered/Resolved]
  - Drug ineffective [Recovered/Resolved]
  - Therapeutic response decreased [Recovering/Resolving]
  - Inhalation therapy [Recovering/Resolving]
  - Dysphonia [Recovering/Resolving]
  - Nausea [Recovering/Resolving]
  - Oropharyngeal pain [Recovering/Resolving]
